FAERS Safety Report 9352633 (Version 1)
Quarter: 2013Q2

REPORT INFORMATION
  Report Type: Spontaneous
  Country: BR (occurrence: BR)
  Receive Date: 20130618
  Receipt Date: 20130618
  Transmission Date: 20140414
  Serious: Yes (Life-Threatening, Hospitalization)
  Sender: FDA-Public Use
  Company Number: BR-ROCHE-1237529

PATIENT
  Age: 62 Year
  Sex: Female
  Weight: 90 kg

DRUGS (5)
  1. MABTHERA [Suspect]
     Indication: CHEMOTHERAPY
     Route: 042
     Dates: start: 20130423, end: 20130426
  2. CYCLOPHOSPHAMIDE [Suspect]
     Indication: CHEMOTHERAPY
     Route: 042
     Dates: start: 20130423, end: 20130426
  3. DOXORUBICIN HCL [Suspect]
     Indication: CHEMOTHERAPY
     Route: 042
     Dates: start: 20130423, end: 20130426
  4. VINCRISTINE [Suspect]
     Indication: CHEMOTHERAPY
     Route: 042
     Dates: start: 20130423, end: 20130426
  5. METHOTREXATE [Suspect]
     Indication: CHEMOTHERAPY
     Route: 042
     Dates: start: 20130423, end: 20130426

REACTIONS (4)
  - Pancytopenia [Recovered/Resolved]
  - Mucosal inflammation [Recovered/Resolved]
  - Infection [Recovered/Resolved]
  - Fusarium infection [Recovered/Resolved]
